FAERS Safety Report 5412855-2 (Version None)
Quarter: 2007Q3

REPORT INFORMATION
  Report Type: 
  Country: None (occurrence: None)
  Receive Date: 20070809
  Receipt Date: 20070725
  Transmission Date: 20080115
  Serious: Yes (Other)
  Sender: FDA-Public Use
  Company Number: 17069

PATIENT
  Age: 49 Year

DRUGS (1)
  1. PACLITAXEL [Suspect]
     Dosage: 324 MG
     Dates: start: 20070612

REACTIONS (4)
  - CHEST DISCOMFORT [None]
  - DYSPNOEA [None]
  - HYPOAESTHESIA [None]
  - LIMB DISCOMFORT [None]
